FAERS Safety Report 8205314-5 (Version None)
Quarter: 2012Q1

REPORT INFORMATION
  Report Type: 
  Country: None (occurrence: None)
  Receive Date: 20120313
  Receipt Date: 20120306
  Transmission Date: 20120608
  Serious: Yes (Hospitalization, Disabling)
  Sender: FDA-Public Use
  Company Number: US-VALEANT-2012VX001041

PATIENT
  Age: 73 Year
  Sex: Male
  Weight: 89 kg

DRUGS (2)
  1. EDECRIN [Suspect]
     Indication: HYPERTENSION
     Route: 048
     Dates: start: 20120101, end: 20120101
  2. SYNTHROID [Concomitant]
     Route: 065

REACTIONS (8)
  - BALANCE DISORDER [None]
  - EAR PAIN [None]
  - DIZZINESS [None]
  - INNER EAR DISORDER [None]
  - VERTIGO [None]
  - OTOTOXICITY [None]
  - TOXICITY TO VARIOUS AGENTS [None]
  - HEADACHE [None]
